FAERS Safety Report 25136011 (Version 1)
Quarter: 2025Q1

REPORT INFORMATION
  Report Type: Report from Study
  Country: DE (occurrence: DE)
  Receive Date: 20250328
  Receipt Date: 20250328
  Transmission Date: 20250409
  Serious: Yes (Life-Threatening, Hospitalization)
  Sender: ALEXION PHARMACEUTICALS
  Company Number: DE-ASTRAZENECA-202503GLO022136DE

PATIENT
  Age: 68 Year
  Weight: 52 kg

DRUGS (9)
  1. DURVALUMAB [Suspect]
     Active Substance: DURVALUMAB
     Indication: Non-small cell lung cancer metastatic
  2. TREMELIMUMAB [Suspect]
     Active Substance: TREMELIMUMAB
     Indication: Non-small cell lung cancer metastatic
  3. DEXAMETHASONE [Concomitant]
     Active Substance: DEXAMETHASONE
  4. ENOXAPARIN [Concomitant]
     Active Substance: ENOXAPARIN
  5. Zystim [Concomitant]
  6. IBUPROFEN [Concomitant]
     Active Substance: IBUPROFEN
  7. LEVOTHYROXINE [Concomitant]
     Active Substance: LEVOTHYROXINE
  8. ROSUVASTATIN [Concomitant]
     Active Substance: ROSUVASTATIN
  9. TAPENTADOL [Concomitant]
     Active Substance: TAPENTADOL

REACTIONS (3)
  - Anaemia [Not Recovered/Not Resolved]
  - Neutrophil count decreased [Recovered/Resolved]
  - Hyponatraemia [Recovered/Resolved]
